FAERS Safety Report 7552076-0 (Version None)
Quarter: 2011Q2

REPORT INFORMATION
  Report Type: 
  Country: None (occurrence: None)
  Receive Date: 20110609
  Receipt Date: 20110525
  Transmission Date: 20111010
  Serious: Yes (Hospitalization)
  Sender: FDA-Public Use
  Company Number: AUR-APL-2011-01934

PATIENT
  Age: 56 Year
  Sex: Male

DRUGS (5)
  1. ASPIRIN [Suspect]
     Indication: AORTIC ANEURYSM
     Dosage: ORAL
     Route: 048
     Dates: start: 20051128
  2. METFORMIN HCL [Suspect]
     Indication: TYPE 2 DIABETES MELLITUS
     Dosage: ORAL
     Route: 048
     Dates: start: 20060622
  3. GLIPIZIDE [Suspect]
     Indication: TYPE 2 DIABETES MELLITUS
     Dates: start: 20080624
  4. IBUPROFEN [Suspect]
     Indication: GINGIVITIS
     Dosage: ORAL
     Route: 048
     Dates: start: 20081215
  5. SAXAGLIPTIN [Suspect]
     Indication: TYPE 2 DIABETES MELLITUS
     Dates: start: 20080624

REACTIONS (5)
  - CONDITION AGGRAVATED [None]
  - AORTIC ANEURYSM [None]
  - FOOD POISONING [None]
  - ABDOMINAL PAIN [None]
  - GASTRIC ULCER [None]
